FAERS Safety Report 20389118 (Version 1)
Quarter: 2022Q1

REPORT INFORMATION
  Report Type: Spontaneous
  Country: US (occurrence: US)
  Receive Date: 20220128
  Receipt Date: 20220128
  Transmission Date: 20220423
  Serious: No
  Sender: FDA-Public Use
  Company Number: US-Blueprint Medicines Corporation-SP-US-2022-000189

PATIENT
  Sex: Female

DRUGS (2)
  1. AYVAKIT [Suspect]
     Active Substance: AVAPRITINIB
     Indication: Systemic mastocytosis
     Route: 048
     Dates: start: 20211021
  2. AYVAKIT [Suspect]
     Active Substance: AVAPRITINIB
     Dosage: MONDAY, WEDNESDAY, FRIDAY, SCHEDULE.
     Route: 048

REACTIONS (5)
  - COVID-19 [Unknown]
  - Nausea [Unknown]
  - Diarrhoea [Unknown]
  - Taste disorder [Unknown]
  - Off label use [Unknown]
